FAERS Safety Report 8776627 (Version 2)
Quarter: 2012Q4

REPORT INFORMATION
  Report Type: 
  Country: JP (occurrence: JP)
  Receive Date: 20120911
  Receipt Date: 20120926
  Transmission Date: 20130627
  Serious: Yes (Life-Threatening)
  Sender: FDA-Public Use
  Company Number: JP-ROCHE-1113414

PATIENT
  Age: 61 Year
  Sex: Male
  Weight: 70 kg

DRUGS (11)
  1. MIRCERA [Suspect]
     Indication: NEPHROGENIC ANAEMIA
     Route: 042
     Dates: start: 20120821
  2. FUROSEMIDE [Concomitant]
     Indication: OEDEMA
     Route: 048
  3. FLUITRAN [Concomitant]
     Indication: OEDEMA
     Route: 048
  4. ALLOZYM [Concomitant]
     Indication: HYPERURICAEMIA
     Route: 048
  5. CRESTOR [Concomitant]
     Indication: HYPERLIPIDAEMIA
     Route: 048
     Dates: start: 20110906
  6. ATELEC [Concomitant]
     Indication: HYPERTENSION
     Route: 048
     Dates: start: 20120124
  7. REMODELLIN [Concomitant]
     Indication: HYPERPARATHYROIDISM SECONDARY
     Route: 048
     Dates: start: 20120124
  8. ARTIST [Concomitant]
     Indication: HYPERTENSION
     Route: 048
     Dates: start: 20120228
  9. ARTIST [Concomitant]
     Indication: DIABETES MELLITUS
     Route: 048
     Dates: start: 20120403
  10. CALTAN [Concomitant]
     Indication: RENAL FAILURE
     Route: 048
     Dates: start: 20120612
  11. ISOLEUCINE/LEUCINE/VALINE [Concomitant]
     Indication: RENAL FAILURE
     Route: 048
     Dates: start: 20120612

REACTIONS (1)
  - Anaphylactic shock [Recovered/Resolved]
